FAERS Safety Report 4478403-9 (Version None)
Quarter: 2004Q3

REPORT INFORMATION
  Report Type: 
  Country: None (occurrence: None)
  Receive Date: 20040923
  Receipt Date: 20040723
  Transmission Date: 20050211
  Serious: No
  Sender: FDA-Public Use
  Company Number: USA040773528

PATIENT
  Age: 81 Year
  Sex: Female

DRUGS (3)
  1. FORTEO [Suspect]
     Indication: OSTEOPOROSIS
     Dates: start: 20040723
  2. LOPRESSOR [Concomitant]
  3. PREVACID [Concomitant]

REACTIONS (7)
  - ANXIETY [None]
  - COLD SWEAT [None]
  - DYSGEUSIA [None]
  - HEART RATE INCREASED [None]
  - NAUSEA [None]
  - PSYCHOMOTOR HYPERACTIVITY [None]
  - SENSORY DISTURBANCE [None]
